FAERS Safety Report 6108691-4 (Version None)
Quarter: 2009Q1

REPORT INFORMATION
  Report Type: 
  Country: None (occurrence: None)
  Receive Date: 20090305
  Receipt Date: 20090220
  Transmission Date: 20090719
  Serious: Yes (Hospitalization)
  Sender: FDA-Public Use
  Company Number: DSA_33273_2009

PATIENT
  Sex: Female

DRUGS (6)
  1. LORAZEPAM [Suspect]
     Dosage: 25 MG 1X, NOT THE PRESCRIBED AMOUNT, ORAL
     Route: 048
     Dates: start: 20081029, end: 20081029
  2. EFFEXOR [Suspect]
     Indication: DEPRESSION
     Dosage: 150 MG QD, ORAL
     Route: 048
  3. METHADONE HCL [Suspect]
     Indication: DRUG USE FOR UNKNOWN INDICATION
     Dosage: 120 MG QD, ORAL
     Route: 048
  4. SEROQUEL [Suspect]
     Indication: DEPRESSION
     Dosage: 200 MG QD, ORAL
     Route: 048
  5. RITALIN [Concomitant]
  6. ALCOHOL [Concomitant]

REACTIONS (3)
  - DRUG INTERACTION [None]
  - INTENTIONAL OVERDOSE [None]
  - RESTLESS LEGS SYNDROME [None]
